FAERS Safety Report 4884407-4 (Version None)
Quarter: 2006Q1

REPORT INFORMATION
  Report Type: 
  Country: None (occurrence: None)
  Receive Date: 20060117
  Receipt Date: 20060117
  Transmission Date: 20060701
  Serious: Yes (Death, Hospitalization)
  Sender: FDA-Public Use
  Company Number: None

PATIENT
  Sex: Male
  Weight: 88.1 kg

DRUGS (4)
  1. CISPLATIN [Suspect]
     Indication: SMALL CELL LUNG CANCER STAGE UNSPECIFIED
     Dosage: SEE IMAGE
     Dates: start: 20050613, end: 20050816
  2. CISPLATIN [Suspect]
     Indication: SMALL CELL LUNG CANCER STAGE UNSPECIFIED
     Dosage: SEE IMAGE
     Dates: start: 20050816
  3. ETOPOSIDE [Suspect]
     Dosage: SEE IMAGE
     Dates: start: 20050613, end: 20050816
  4. ETOPOSIDE [Suspect]
     Dosage: SEE IMAGE
     Dates: start: 20050816

REACTIONS (3)
  - HYPERGLYCAEMIA [None]
  - PNEUMONIA [None]
  - RESPIRATORY DISTRESS [None]
